FAERS Safety Report 23966962 (Version 1)
Quarter: 2024Q2

REPORT INFORMATION
  Report Type: Report from Study
  Country: PR (occurrence: PR)
  Receive Date: 20240612
  Receipt Date: 20240612
  Transmission Date: 20240716
  Serious: Yes (Hospitalization, Other)
  Sender: FDA-Public Use
  Company Number: PR-ABBVIE-5793037

PATIENT
  Age: 53 Year
  Sex: Female
  Weight: 62 kg

DRUGS (1)
  1. HUMIRA [Suspect]
     Active Substance: ADALIMUMAB
     Indication: Rheumatoid arthritis
     Dosage: FORM STRENGTH: 40 MILLIGRAM
     Route: 058
     Dates: start: 20230615

REACTIONS (10)
  - Precancerous condition [Recovering/Resolving]
  - Influenza [Recovered/Resolved]
  - Gastritis [Recovered/Resolved]
  - Secretion discharge [Recovered/Resolved]
  - Gastrooesophageal reflux disease [Recovered/Resolved]
  - Arthritis [Recovering/Resolving]
  - Tongue discomfort [Recovered/Resolved]
  - Arthralgia [Recovering/Resolving]
  - Oral candidiasis [Recovered/Resolved]
  - Hypophagia [Unknown]

NARRATIVE: CASE EVENT DATE: 20231201
